FAERS Safety Report 8910180 (Version 2)
Quarter: 2012Q4

REPORT INFORMATION
  Report Type: 
  Country: US (occurrence: US)
  Receive Date: 20121114
  Receipt Date: 20121227
  Transmission Date: 20130627
  Serious: Yes (Other)
  Sender: FDA-Public Use
  Company Number: US-VERTEX PHARMACEUTICAL INC.-2012-024209

PATIENT
  Sex: Female

DRUGS (12)
  1. INCIVEK [Suspect]
     Indication: HEPATITIS C
     Dosage: 750 mg, tid
     Route: 048
     Dates: start: 20120129
  2. PEGASYS [Suspect]
     Indication: HEPATITIS C
     Dosage: 180 ?g, qw
     Route: 058
     Dates: start: 20120129
  3. RIBAVIRIN [Suspect]
     Indication: HEPATITIS C
     Dosage: 1200 mg, qd
     Route: 048
     Dates: start: 20120129
  4. AMBIEN [Concomitant]
  5. LEVOTHYROXINE [Concomitant]
  6. TRIAMTERENE/HCTZ [Concomitant]
  7. MULTIVITAMIN                       /00097801/ [Concomitant]
  8. B12                                /00056201/ [Concomitant]
  9. B50 [Concomitant]
  10. FLAXSEED OIL [Concomitant]
  11. OSTEO BI-FLEX [Concomitant]
  12. TRAZODONE [Concomitant]
     Dosage: 50 mg, UNK

REACTIONS (1)
  - Sarcoidosis [Unknown]
